FAERS Safety Report 25150144 (Version 1)
Quarter: 2025Q2

REPORT INFORMATION
  Report Type: Report from Study
  Country: US (occurrence: US)
  Receive Date: 20250402
  Receipt Date: 20250402
  Transmission Date: 20250717
  Serious: No
  Sender: VANDA PHARMACEUTICALS
  Company Number: US-VANDA PHARMACEUTICALS, INC-2024PONUS001135

PATIENT
  Age: 55 Year
  Sex: Female

DRUGS (2)
  1. PONESIMOD [Suspect]
     Active Substance: PONESIMOD
     Indication: Multiple sclerosis
     Dosage: 2,3,4,5,6,7,8,9,10 MG, QD, TAKE 1 TABLET BY MOUTH ONCE DAILY PER THE PRESCRIBED 14 DAY TITRATION SCH
     Route: 048
     Dates: start: 20241119
  2. PONESIMOD [Suspect]
     Active Substance: PONESIMOD
     Dosage: 20 MILLIGRAM, QD, TAKE ONE TABLET BY MOUTH DAILY AFTER COMPLETING 14 DAY TITRATION PACK
     Route: 048
     Dates: start: 20241129

REACTIONS (9)
  - Multiple sclerosis relapse [Unknown]
  - Fall [Unknown]
  - Cognitive disorder [Unknown]
  - Mobility decreased [Unknown]
  - Rhinorrhoea [Not Recovered/Not Resolved]
  - Peripheral swelling [Recovered/Resolved]
  - Hypoaesthesia [Not Recovered/Not Resolved]
  - Nasopharyngitis [Unknown]
  - Fatigue [Unknown]

NARRATIVE: CASE EVENT DATE: 20241101
